FAERS Safety Report 7570630-7 (Version None)
Quarter: 2011Q2

REPORT INFORMATION
  Report Type: 
  Country: None (occurrence: None)
  Receive Date: 20110622
  Receipt Date: 20110622
  Transmission Date: 20111010
  Serious: Yes (Other)
  Sender: FDA-Public Use
  Company Number: None

PATIENT
  Sex: Female
  Weight: 60.9 kg

DRUGS (1)
  1. PRADAXA [Suspect]
     Indication: ATRIAL FIBRILLATION
     Dosage: 150MG TWICE A DAY ORAL
     Route: 048
     Dates: start: 20110509, end: 20110603

REACTIONS (5)
  - ERYTHEMA [None]
  - DYSPHAGIA [None]
  - VASODILATATION [None]
  - ODYNOPHAGIA [None]
  - BALANCE DISORDER [None]
